FAERS Safety Report 7423293 (Version 18)
Quarter: 2017Q1

REPORT INFORMATION
  Report Type: Report from Study
  Country: CA (occurrence: CA)
  Receive Date: 20100617
  Receipt Date: 20170208
  Transmission Date: 20170429
  Serious: Yes (Other)
  Sender: FDA-Public Use
  Company Number: PHHY2010CA15278

PATIENT
  Age: 54 Year
  Sex: Female

DRUGS (7)
  1. SANDOSTATIN LAR DEPOT [Suspect]
     Active Substance: OCTREOTIDE ACETATE
     Indication: CARCINOID TUMOUR
     Dosage: 30 MG, EVERY 4 WEEKS, QMO
     Route: 030
     Dates: start: 20100206, end: 20100214
  2. SANDOSTATIN LAR DEPOT [Suspect]
     Active Substance: OCTREOTIDE ACETATE
     Dosage: 60 MG, ONCE/SINGLE
     Route: 030
     Dates: start: 20120320
  3. SANDOSTATIN LAR DEPOT [Suspect]
     Active Substance: OCTREOTIDE ACETATE
     Dosage: 60 MG, ONCE/SINGLE
     Route: 030
     Dates: start: 20120705
  4. SANDOSTATIN LAR DEPOT [Suspect]
     Active Substance: OCTREOTIDE ACETATE
     Dosage: 20 MG, ONCE/SINGLE OR TO REPLACE WASTE DOSAGE
     Route: 030
     Dates: start: 20140403
  5. SANDOSTATIN LAR DEPOT [Suspect]
     Active Substance: OCTREOTIDE ACETATE
     Dosage: 30 MG, QMO (EVERY 4 WEEKS)
     Route: 030
  6. SANDOSTATIN LAR DEPOT [Suspect]
     Active Substance: OCTREOTIDE ACETATE
     Dosage: 30 MG, QMO (EVERY 4 WEEKS)
     Route: 030
     Dates: start: 20150317
  7. SANDOSTATIN [Suspect]
     Active Substance: OCTREOTIDE ACETATE
     Indication: CARCINOID SYNDROME
     Dosage: TEST DOSE
     Route: 058
     Dates: start: 20100114, end: 20100114

REACTIONS (15)
  - Injection site warmth [Unknown]
  - Injection site pain [Unknown]
  - Gastric polyps [Unknown]
  - Injection site mass [Unknown]
  - Underdose [Unknown]
  - Injection site erythema [Unknown]
  - Diarrhoea [Unknown]
  - Nasopharyngitis [Unknown]
  - Blood pressure systolic increased [Unknown]
  - Blood pressure increased [Unknown]
  - Injection site reaction [Unknown]
  - Syringe issue [Unknown]
  - Body temperature increased [Unknown]
  - Hyperhidrosis [Unknown]
  - Psoriasis [Recovered/Resolved]

NARRATIVE: CASE EVENT DATE: 20120214
